FAERS Safety Report 16764158 (Version 1)
Quarter: 2019Q3

REPORT INFORMATION
  Report Type: Spontaneous
  Country: GB (occurrence: GB)
  Receive Date: 20190902
  Receipt Date: 20190902
  Transmission Date: 20191005
  Serious: Yes (Death)
  Sender: FDA-Public Use
  Company Number: GB-ASTRAZENECA-2019SF23450

PATIENT
  Age: 24 Year
  Sex: Male

DRUGS (4)
  1. ZAPONEX [Suspect]
     Active Substance: CLOZAPINE
     Indication: SCHIZOPHRENIA
     Dosage: 1000 MG, TAKEN HOPING TO END HIS LIFE
     Route: 048
     Dates: start: 20190107, end: 20190107
  2. HYOSCINE [Concomitant]
     Active Substance: SCOPOLAMINE
     Dosage: 600UG/INHAL DAILY
  3. ZAPONEX [Suspect]
     Active Substance: CLOZAPINE
     Indication: SCHIZOPHRENIA
     Route: 048
     Dates: start: 20180509, end: 20190108
  4. QUETIAPINE. [Suspect]
     Active Substance: QUETIAPINE
     Dosage: TAKEN HOPING TO END HIS LIFE
     Route: 048
     Dates: start: 20190107, end: 20190107

REACTIONS (3)
  - Postmortem blood drug level increased [Fatal]
  - Toxicity to various agents [Fatal]
  - Completed suicide [Fatal]

NARRATIVE: CASE EVENT DATE: 20190107
